FAERS Safety Report 24669102 (Version 1)
Quarter: 2024Q4

REPORT INFORMATION
  Report Type: Spontaneous
  Country: CN (occurrence: CN)
  Receive Date: 20241127
  Receipt Date: 20241127
  Transmission Date: 20250114
  Serious: Yes (Other)
  Sender: AUROBINDO
  Company Number: CN-AUROBINDO-AUR-APL-2024-057825

PATIENT
  Age: 61 Year
  Sex: Female

DRUGS (4)
  1. MELPHALAN [Suspect]
     Active Substance: MELPHALAN
     Indication: Plasma cell myeloma
     Dosage: 150 MILLIGRAM, ONCE A DAY
     Route: 042
     Dates: start: 20241110, end: 20241111
  2. MELPHALAN [Suspect]
     Active Substance: MELPHALAN
     Indication: Autologous haematopoietic stem cell transplant
  3. OFLOXACIN [Concomitant]
     Active Substance: OFLOXACIN
     Indication: Eye infection
     Dosage: 1 DROP, 3 TIMES A DAY
     Route: 065
     Dates: start: 20241108, end: 20241111
  4. LEVOCARNITINE [Concomitant]
     Active Substance: LEVOCARNITINE
     Indication: Product used for unknown indication
     Dosage: 2 GRAM, ONCE A DAY
     Route: 065
     Dates: start: 20241109, end: 20241113

REACTIONS (4)
  - Cardiotoxicity [Unknown]
  - Blood pressure decreased [Unknown]
  - Headache [Unknown]
  - Nausea [Unknown]
